FAERS Safety Report 9384445 (Version 4)
Quarter: 2013Q4

REPORT INFORMATION
  Report Type: Report from Study
  Country: JP (occurrence: JP)
  Receive Date: 20130705
  Receipt Date: 20131204
  Transmission Date: 20140711
  Serious: Yes (Hospitalization)
  Sender: FDA-Public Use
  Company Number: JP-ROCHE-1200939

PATIENT
  Age: 74 Year
  Sex: Female

DRUGS (18)
  1. RITUXIMAB [Suspect]
     Indication: B-CELL LYMPHOMA
     Route: 042
     Dates: start: 20120130, end: 20120130
  2. RITUXIMAB [Suspect]
     Route: 042
     Dates: start: 20120229, end: 20120229
  3. RITUXIMAB [Suspect]
     Route: 042
     Dates: start: 20130328, end: 20130328
  4. BENDAMUSTINE HYDROCHLORIDE [Suspect]
     Indication: B-CELL LYMPHOMA
     Dosage: DAILY
     Route: 042
     Dates: start: 20120131, end: 20120201
  5. BENDAMUSTINE HYDROCHLORIDE [Suspect]
     Dosage: DAILY
     Route: 042
     Dates: start: 20120229, end: 20120301
  6. BENDAMUSTINE HYDROCHLORIDE [Suspect]
     Dosage: DAILY
     Route: 042
     Dates: start: 20120328, end: 20120329
  7. ACETAMINOPHEN [Concomitant]
     Dosage: DAILY
     Route: 048
     Dates: start: 20120130, end: 20120130
  8. DEXCHLORPHENIRAMINE MALEATE [Concomitant]
     Indication: B-CELL LYMPHOMA
     Dosage: DAILY
     Route: 048
     Dates: start: 20120130, end: 20120130
  9. HYDROCORTISONE SODIUM SUCCINATE [Concomitant]
     Indication: B-CELL LYMPHOMA
     Route: 042
     Dates: start: 20120130, end: 20120130
  10. GRANISETRON HYDROCHLORIDE [Concomitant]
     Indication: PROPHYLAXIS OF NAUSEA AND VOMITING
     Dosage: DAILY
     Route: 042
     Dates: start: 20120131, end: 20130201
  11. GRANISETRON HYDROCHLORIDE [Concomitant]
     Indication: PROPHYLAXIS OF NAUSEA AND VOMITING
  12. DEXAMETHASONE SODIUM PHOSPHATE [Concomitant]
     Indication: PROPHYLAXIS OF NAUSEA AND VOMITING
     Dosage: DAILY
     Route: 042
     Dates: start: 20120131, end: 20120201
  13. DEXAMETHASONE SODIUM PHOSPHATE [Concomitant]
     Indication: PROPHYLAXIS OF NAUSEA AND VOMITING
  14. KARY UNI [Concomitant]
     Dosage: SUSPENSION
     Route: 065
     Dates: start: 200707
  15. PIRENOXINE [Concomitant]
     Indication: CATARACT
     Dosage: DAILY
     Route: 065
     Dates: start: 200707
  16. METHYL SALICYLATE [Concomitant]
     Indication: PERIARTHRITIS
     Dosage: DAILY
     Route: 050
     Dates: start: 200711
  17. MENTHOL [Concomitant]
     Indication: PERIARTHRITIS
     Dosage: DAILY
     Route: 050
     Dates: start: 200711
  18. MOHRUS TAPE [Concomitant]
     Indication: PERIARTHRITIS
     Dosage: DAILY
     Route: 050
     Dates: start: 200711

REACTIONS (2)
  - Tumour lysis syndrome [Recovered/Resolved]
  - Breast cancer [Recovering/Resolving]
